FAERS Safety Report 8152790-2 (Version None)
Quarter: 2012Q1

REPORT INFORMATION
  Report Type: 
  Country: None (occurrence: None)
  Receive Date: 20120221
  Receipt Date: 20120215
  Transmission Date: 20120608
  Serious: Yes (Life-Threatening)
  Sender: FDA-Public Use
  Company Number: CA-BAYER-2012-015291

PATIENT

DRUGS (1)
  1. AVELOX [Suspect]
     Dosage: UNK, ONCE

REACTIONS (2)
  - ANAPHYLACTIC SHOCK [None]
  - DRUG DISPENSING ERROR [None]
